FAERS Safety Report 15166287 (Version 7)
Quarter: 2022Q3

REPORT INFORMATION
  Report Type: Spontaneous
  Country: DE (occurrence: DE)
  Receive Date: 20180719
  Receipt Date: 20220720
  Transmission Date: 20221027
  Serious: Yes (Life-Threatening, Hospitalization, Other)
  Sender: FDA-Public Use
  Company Number: DE-MERCK KGAA-9012169

PATIENT
  Age: 71 Year
  Sex: Male
  Weight: 130 kg

DRUGS (10)
  1. METFORMIN [Suspect]
     Active Substance: METFORMIN HYDROCHLORIDE
     Indication: Type 2 diabetes mellitus
     Dosage: 1000 MILLIGRAM, QD
     Route: 048
     Dates: end: 20170418
  2. METFORMIN [Suspect]
     Active Substance: METFORMIN HYDROCHLORIDE
     Dosage: UNK
     Route: 065
  3. RAMIPRIL [Concomitant]
     Active Substance: RAMIPRIL
     Indication: Hypertension
     Dosage: 2.5 MILLIGRAM, QD
     Route: 048
  4. METOPROLOL SUCCINATE [Concomitant]
     Active Substance: METOPROLOL SUCCINATE
     Indication: Hypertension
     Dosage: 95 MILLIGRAM, QD
     Route: 048
  5. HYDROCHLOROTHIAZIDE [Concomitant]
     Active Substance: HYDROCHLOROTHIAZIDE
     Indication: Hypertension
     Dosage: 12.5 MILLIGRAM, QD
     Route: 048
     Dates: end: 20170418
  6. SPIRONOLACTONE [Concomitant]
     Active Substance: SPIRONOLACTONE
     Indication: Cardiac failure
     Dosage: 50 MILLIGRAM, QD
     Route: 048
     Dates: end: 20170413
  7. FUROSEMIDE [Concomitant]
     Active Substance: FUROSEMIDE
     Indication: Cardiac failure
     Dosage: 120 MILLIGRAM, QD
     Route: 048
  8. .BETA.-ACETYLDIGOXIN [Concomitant]
     Active Substance: .BETA.-ACETYLDIGOXIN
     Indication: Atrial fibrillation
     Dosage: 0.2 MILLIGRAM, QD
     Route: 048
     Dates: end: 20170418
  9. MARCUMAR [Concomitant]
     Active Substance: PHENPROCOUMON
     Indication: Atrial fibrillation
     Dosage: 3 GRAM
     Route: 048
     Dates: end: 20170413
  10. METRONIDAZOLE [Concomitant]
     Active Substance: METRONIDAZOLE
     Indication: Gastroenteritis clostridial
     Dosage: UNK
     Route: 065

REACTIONS (6)
  - Drug level increased [Unknown]
  - Acute kidney injury [Recovering/Resolving]
  - Toxicity to various agents [Recovered/Resolved]
  - Lactic acidosis [Recovered/Resolved]
  - Diarrhoea [Unknown]
  - Vomiting [Unknown]

NARRATIVE: CASE EVENT DATE: 20170418
